FAERS Safety Report 20076485 (Version 2)
Quarter: 2022Q1

REPORT INFORMATION
  Report Type: Spontaneous
  Country: US (occurrence: US)
  Receive Date: 20211116
  Receipt Date: 20220118
  Transmission Date: 20220423
  Serious: No
  Sender: FDA-Public Use
  Company Number: US-SA-SAC20211115000508

PATIENT
  Sex: Male

DRUGS (6)
  1. DUPIXENT [Suspect]
     Active Substance: DUPILUMAB
     Indication: Dermatitis atopic
     Dosage: 300 MG, QOW
     Route: 058
  2. CLOBETASOL PROPIONATE [Concomitant]
     Active Substance: CLOBETASOL PROPIONATE
     Route: 065
  3. TACROLIMUS [Concomitant]
     Active Substance: TACROLIMUS
     Dosage: UNK
     Route: 065
  4. NEOMYCIN [Concomitant]
     Active Substance: NEOMYCIN
     Dosage: UNK
     Route: 065
  5. RUXOLITINIB [Concomitant]
     Active Substance: RUXOLITINIB
     Dosage: UNK
     Route: 065
  6. POLYMYXIN [Concomitant]
     Active Substance: POLYMYXIN
     Dosage: UNK
     Route: 065

REACTIONS (5)
  - Sticky skin [Unknown]
  - Grip strength decreased [Unknown]
  - Skin sensitisation [Unknown]
  - Pruritus [Unknown]
  - Product dose omission issue [Unknown]
